FAERS Safety Report 9834663 (Version 1)
Quarter: 2014Q1

REPORT INFORMATION
  Report Type: Spontaneous
  Country: SE (occurrence: SE)
  Receive Date: 20140122
  Receipt Date: 20140122
  Transmission Date: 20141002
  Serious: Yes (Other)
  Sender: FDA-Public Use
  Company Number: PHHY2014SE005735

PATIENT
  Sex: Male

DRUGS (6)
  1. CICLOSPORIN [Suspect]
     Dosage: MATERNAL DOSE 550 MG, PER DAY
     Route: 064
  2. PREDNISOLONE [Suspect]
     Dosage: MATERNAL DOSE 5 MG, PER DAY
     Route: 064
  3. METHYLPREDNISOLONE [Suspect]
     Route: 064
  4. FUROSEMIDE [Suspect]
     Route: 064
  5. METOPROLOL [Suspect]
     Route: 064
  6. HYDRALAZINE [Suspect]
     Route: 064

REACTIONS (7)
  - Premature baby [Unknown]
  - Low birth weight baby [Unknown]
  - Small for dates baby [Unknown]
  - Growth retardation [Unknown]
  - Thrombocytopenia [Recovered/Resolved]
  - Blood creatinine increased [Unknown]
  - Foetal exposure during pregnancy [Unknown]
